FAERS Safety Report 19031946 (Version 1)
Quarter: 2021Q1

REPORT INFORMATION
  Report Type: Spontaneous
  Country: US (occurrence: US)
  Receive Date: 20210319
  Receipt Date: 20210319
  Transmission Date: 20210420
  Serious: Yes (Life-Threatening, Other)
  Sender: FDA-Public Use
  Company Number: US-PFIZER INC-2021284983

PATIENT
  Age: 32 Year
  Sex: Male

DRUGS (7)
  1. BUPIVACAINE HCL [Suspect]
     Active Substance: BUPIVACAINE HYDROCHLORIDE
     Dosage: 0.5 ML
  2. METHOHEXITAL [Concomitant]
     Active Substance: METHOHEXITAL
     Dosage: 200 MG
     Route: 042
  3. FENTANYL CITRATE. [Concomitant]
     Active Substance: FENTANYL CITRATE
     Dosage: 50 UG
     Route: 042
  4. MIDAZOLAM. [Concomitant]
     Active Substance: MIDAZOLAM
     Dosage: 2 MG
     Route: 042
  5. LIDOCAINE. [Concomitant]
     Active Substance: LIDOCAINE
     Dosage: 3 ML
  6. BUPIVACAINE HCL [Suspect]
     Active Substance: BUPIVACAINE HYDROCHLORIDE
     Dosage: ADDITIONAL 1.25 ML
  7. DROPERIDOL. [Concomitant]
     Active Substance: DROPERIDOL
     Dosage: 0.625 MG
     Route: 042

REACTIONS (1)
  - Acute pulmonary oedema [Recovering/Resolving]
